FAERS Safety Report 21612571 (Version 1)
Quarter: 2022Q4

REPORT INFORMATION
  Report Type: Spontaneous
  Country: US (occurrence: US)
  Receive Date: 20221118
  Receipt Date: 20221118
  Transmission Date: 20230112
  Serious: No
  Sender: FDA-Public Use
  Company Number: US-BION-010973

PATIENT
  Age: 66 Year
  Sex: Female
  Weight: 54.43 kg

DRUGS (2)
  1. ERGOCALCIFEROL [Suspect]
     Active Substance: ERGOCALCIFEROL
     Indication: Product used for unknown indication
  2. ZOLOFT [Concomitant]
     Active Substance: SERTRALINE HYDROCHLORIDE
     Indication: Anxiety
     Dosage: STRENGTH: 100MG, 2-100MG TABLETS A DAY
     Route: 048

REACTIONS (2)
  - Throat tightness [Unknown]
  - Swollen tongue [Unknown]
